FAERS Safety Report 8224880-7 (Version None)
Quarter: 2012Q1

REPORT INFORMATION
  Report Type: 
  Country: None (occurrence: None)
  Receive Date: 20120321
  Receipt Date: 20120319
  Transmission Date: 20120608
  Serious: Yes (Other)
  Sender: FDA-Public Use
  Company Number: US-ABBOTT-11P-163-0848241-00

PATIENT
  Sex: Female
  Weight: 74.456 kg

DRUGS (3)
  1. METHOTREXATE [Concomitant]
     Indication: RHEUMATOID ARTHRITIS
     Dates: start: 20080101
  2. HUMIRA [Suspect]
     Indication: RHEUMATOID ARTHRITIS
     Dates: end: 20110601
  3. HUMIRA [Suspect]
     Indication: FIBROMYALGIA

REACTIONS (2)
  - TOOTH LOSS [None]
  - TOOTH EROSION [None]
